FAERS Safety Report 21070603 (Version 1)
Quarter: 2022Q3

REPORT INFORMATION
  Report Type: Spontaneous
  Country: CA (occurrence: CA)
  Receive Date: 20220712
  Receipt Date: 20220712
  Transmission Date: 20221027
  Serious: Yes (Hospitalization)
  Sender: FDA-Public Use
  Company Number: CA-PFIZER INC-202200949276

PATIENT
  Age: 79 Year
  Sex: Male

DRUGS (1)
  1. PHENYTOIN [Suspect]
     Active Substance: PHENYTOIN
     Dosage: UNK
     Route: 048

REACTIONS (5)
  - Anticonvulsant drug level above therapeutic [Unknown]
  - Confusional state [Unknown]
  - Fall [Unknown]
  - Sedation [Unknown]
  - Somnolence [Unknown]
